FAERS Safety Report 9600443 (Version 1)
Quarter: 2013Q4

REPORT INFORMATION
  Report Type: Spontaneous
  Country: US (occurrence: US)
  Receive Date: 20131004
  Receipt Date: 20131004
  Transmission Date: 20140711
  Serious: No
  Sender: FDA-Public Use
  Company Number: US-AMGEN-USASP2013034112

PATIENT
  Age: 64 Year
  Sex: Female
  Weight: 96.15 kg

DRUGS (11)
  1. ENBREL [Suspect]
     Indication: PRODUCT USED FOR UNKNOWN INDICATION
     Dosage: 50 MG, QWK
     Route: 058
     Dates: start: 20090429
  2. MOTRIN [Concomitant]
     Dosage: 600 MG, UNK
  3. PROMETRIUM                         /00110701/ [Concomitant]
     Dosage: 100 MG, UNK
  4. PREDNISONE [Concomitant]
     Dosage: 01 MG, UNK
  5. ESTRADIOL [Concomitant]
     Dosage: 0.025 MG, UNK
  6. VITAMIN D3 [Concomitant]
     Dosage: 1000 UNIT, UNK
  7. MULTIVITAMINS, PLAIN [Concomitant]
     Dosage: UNK
  8. HUMIRA [Concomitant]
     Dosage: UNK
     Dates: start: 20110713
  9. CIMZIA [Concomitant]
     Dosage: UNK
     Dates: start: 20120214
  10. CALCIUM D                          /00944201/ [Concomitant]
     Dosage: UNK
  11. ORENCIA [Concomitant]
     Dosage: 125 MG, UNK

REACTIONS (3)
  - Diarrhoea [Unknown]
  - Vomiting [Unknown]
  - Psoriatic arthropathy [Unknown]
